FAERS Safety Report 8792596 (Version 2)
Quarter: 2012Q4

REPORT INFORMATION
  Report Type: 
  Country: US (occurrence: US)
  Receive Date: 20120918
  Receipt Date: 20121101
  Transmission Date: 20130627
  Serious: Yes (Hospitalization)
  Sender: FDA-Public Use
  Company Number: US-PFIZER INC-2012225426

PATIENT
  Age: 72 Year
  Sex: Male
  Weight: 64.18 kg

DRUGS (9)
  1. SUTENT [Suspect]
     Indication: METASTATIC RENAL CELL CARCINOMA
     Dosage: 50 mg, 1x/day, 4 weeks on 2 weeks off
     Dates: start: 20120308
  2. SUTENT [Suspect]
     Dosage: 37.5 mg, 1x/day, cyclic
     Dates: start: 20120823
  3. TYLENOL [Concomitant]
     Dosage: Take 500-1,000 mg, as needed
     Route: 048
  4. ZOFRAN [Concomitant]
     Dosage: 8 mg, 3x/day
     Route: 048
  5. ROXICODONE [Concomitant]
     Indication: PAIN
     Dosage: 5 mg, as needed
     Route: 048
  6. ULTRAM [Concomitant]
     Dosage: 50 mg, 4x/day
     Route: 048
  7. SENNA [Concomitant]
     Indication: CONSTIPATION
     Dosage: UNK, 2 times daily
     Route: 048
  8. GABAPENTIN [Concomitant]
     Dosage: 300 mg, twice daily
  9. MS CONTIN [Concomitant]
     Dosage: UNK

REACTIONS (20)
  - Haematemesis [Unknown]
  - Mallory-Weiss syndrome [Unknown]
  - Gastrointestinal haemorrhage [Recovered/Resolved]
  - Dental operation [Recovered/Resolved]
  - Dysgeusia [Unknown]
  - Oral disorder [Unknown]
  - Pain in extremity [Unknown]
  - Faeces discoloured [Unknown]
  - Back pain [Recovering/Resolving]
  - Hiccups [Unknown]
  - Flank pain [Recovering/Resolving]
  - Decreased appetite [Unknown]
  - Nausea [Unknown]
  - Constipation [Unknown]
  - Weight decreased [Unknown]
  - Disease progression [Unknown]
  - Metastatic renal cell carcinoma [Unknown]
  - Tooth extraction [Unknown]
  - Leukopenia [Unknown]
  - Thrombocytopenia [Unknown]
